FAERS Safety Report 7792153-2 (Version None)
Quarter: 2011Q4

REPORT INFORMATION
  Report Type: 
  Country: None (occurrence: None)
  Receive Date: 20111003
  Receipt Date: 20111003
  Transmission Date: 20120403
  Serious: Yes (Hospitalization)
  Sender: FDA-Public Use
  Company Number: None

PATIENT
  Age: 45 Year
  Sex: Male

DRUGS (3)
  1. RIBASPHERE [Concomitant]
     Dosage: 1000MG
     Route: 048
     Dates: start: 20110812, end: 20110912
  2. INCIVEK [Concomitant]
     Route: 048
  3. PEGASYS [Suspect]
     Indication: HEPATITIS C
     Dosage: 1
     Route: 058
     Dates: start: 20110812, end: 20110912

REACTIONS (3)
  - PSYCHOTIC DISORDER [None]
  - RECTAL HAEMORRHAGE [None]
  - DIARRHOEA [None]
